FAERS Safety Report 10452500 (Version 1)
Quarter: 2014Q3

REPORT INFORMATION
  Report Type: Spontaneous
  Country: GB (occurrence: GB)
  Receive Date: 20140915
  Receipt Date: 20140915
  Transmission Date: 20150326
  Serious: Yes (Life-Threatening, Hospitalization, Other)
  Sender: FDA-Public Use
  Company Number: GB-JNJFOC-20140907450

PATIENT
  Age: 74 Year
  Sex: Male
  Weight: 78 kg

DRUGS (12)
  1. XARELTO [Suspect]
     Active Substance: RIVAROXABAN
     Indication: EMBOLISM VENOUS
     Dosage: FILM COATED TABLET
     Route: 048
  2. XARELTO [Suspect]
     Active Substance: RIVAROXABAN
     Indication: DEEP VEIN THROMBOSIS
     Dosage: FILM COATED TABLET
     Route: 048
     Dates: start: 20140710
  3. BISOPROLOL [Concomitant]
     Active Substance: BISOPROLOL
  4. XARELTO [Suspect]
     Active Substance: RIVAROXABAN
     Indication: EMBOLISM VENOUS
     Dosage: FILM COATED TABLET
     Route: 048
     Dates: start: 20140710
  5. XARELTO [Suspect]
     Active Substance: RIVAROXABAN
     Indication: EMBOLISM VENOUS
     Dosage: FILM COATED TABLETS
     Route: 048
  6. XARELTO [Suspect]
     Active Substance: RIVAROXABAN
     Indication: DEEP VEIN THROMBOSIS
     Dosage: FILM COATED TABLETS
     Route: 048
  7. DOXAZOSIN [Concomitant]
     Active Substance: DOXAZOSIN\DOXAZOSIN MESYLATE
  8. XARELTO [Suspect]
     Active Substance: RIVAROXABAN
     Indication: HERNIA
     Dosage: FILM COATED TABLET
     Route: 048
  9. TAMSULOSIN HYDROCHLORIDE. [Concomitant]
     Active Substance: TAMSULOSIN HYDROCHLORIDE
  10. XARELTO [Suspect]
     Active Substance: RIVAROXABAN
     Indication: DEEP VEIN THROMBOSIS
     Dosage: FILM COATED TABLET
     Route: 048
  11. XARELTO [Suspect]
     Active Substance: RIVAROXABAN
     Indication: HERNIA
     Dosage: FILM COATED TABLET
     Route: 048
     Dates: start: 20140710
  12. XARELTO [Suspect]
     Active Substance: RIVAROXABAN
     Indication: HERNIA
     Dosage: FILM COATED TABLETS
     Route: 048

REACTIONS (4)
  - Melaena [Recovered/Resolved]
  - Syncope [Recovered/Resolved]
  - Hypotension [Recovered/Resolved]
  - Upper gastrointestinal haemorrhage [Recovered/Resolved]

NARRATIVE: CASE EVENT DATE: 20140722
